FAERS Safety Report 7003028-0 (Version None)
Quarter: 2010Q3

REPORT INFORMATION
  Report Type: 
  Country: None (occurrence: None)
  Receive Date: 20100920
  Receipt Date: 20091218
  Transmission Date: 20110219
  Serious: Yes (Hospitalization, Other)
  Sender: FDA-Public Use
  Company Number: US-ASTRAZENECA-2009UW21612

PATIENT
  Age: 464 Month
  Sex: Male
  Weight: 83.9 kg

DRUGS (4)
  1. SEROQUEL [Suspect]
     Indication: SCHIZOPHRENIA
     Dosage: 300 MG, 600 MG, 900 MG, 1000 MG, 1200 MG
     Route: 048
     Dates: start: 20040426, end: 20060206
  2. ZYPREXA [Suspect]
     Indication: SCHIZOPHRENIA
     Route: 065
     Dates: start: 19990103, end: 20040426
  3. ABILIFY [Concomitant]
     Indication: SCHIZOPHRENIA
     Dates: start: 20040101
  4. GEODON [Concomitant]
     Indication: SCHIZOPHRENIA
     Dates: start: 20040101

REACTIONS (5)
  - HYPERGLYCAEMIA [None]
  - MOVEMENT DISORDER [None]
  - PANCREATITIS [None]
  - TARDIVE DYSKINESIA [None]
  - TYPE 2 DIABETES MELLITUS [None]
